FAERS Safety Report 7043489-4 (Version None)
Quarter: 2010Q3

REPORT INFORMATION
  Report Type: 
  Country: None (occurrence: None)
  Receive Date: 20100929
  Receipt Date: 20100620
  Transmission Date: 20110219
  Serious: No
  Sender: FDA-Public Use
  Company Number: US-WYE-H16095810

PATIENT
  Sex: Female

DRUGS (1)
  1. PRISTIQ [Suspect]

REACTIONS (4)
  - DIZZINESS [None]
  - MALAISE [None]
  - NAUSEA [None]
  - VOMITING [None]
